FAERS Safety Report 20742391 (Version 1)
Quarter: 2022Q2

REPORT INFORMATION
  Report Type: Spontaneous
  Country: CA (occurrence: CA)
  Receive Date: 20220424
  Receipt Date: 20220424
  Transmission Date: 20220721
  Serious: Yes (Other)
  Sender: FDA-Public Use
  Company Number: CA-TEVA-2022-CA-2028067

PATIENT
  Sex: Male
  Weight: 88.1 kg

DRUGS (2)
  1. PREDNISONE [Suspect]
     Active Substance: PREDNISONE
     Dosage: (2 TABLETS) AND IS TITRATING
     Route: 065
  2. PREDNISONE [Suspect]
     Active Substance: PREDNISONE
     Dosage: NOW EVERY 4 WEEKS.
     Route: 065

REACTIONS (3)
  - Haematochezia [Unknown]
  - Insomnia [Unknown]
  - Abdominal pain [Unknown]
